FAERS Safety Report 26051337 (Version 1)
Quarter: 2025Q4

REPORT INFORMATION
  Report Type: Spontaneous
  Country: US (occurrence: US)
  Receive Date: 20251117
  Receipt Date: 20251117
  Transmission Date: 20260118
  Serious: No
  Sender: TOLMAR
  Company Number: US-Tolmar-TLM-2025-08442

PATIENT

DRUGS (2)
  1. ELIGARD [Suspect]
     Active Substance: LEUPROLIDE ACETATE
     Indication: Prostate cancer
     Dosage: LOT NUMBER: 15548CUS EXP: 11/2026?SYRINGE A: LOT NUMBER: 15548AUS EXP 11/2026?SYRIGNE B: LOT NUMBER:
  2. DEVICE [Suspect]
     Active Substance: DEVICE
     Indication: Prostate cancer
     Dosage: LOT NUMBER: 15548CUS EXP: 11/2026?SYRINGE A: LOT NUMBER: 15548AUS EXP 11/2026?SYRIGNE B: LOT NUMBER:

REACTIONS (3)
  - Intercepted product preparation error [Unknown]
  - Wrong technique in product usage process [Unknown]
  - Device leakage [Unknown]
